FAERS Safety Report 9939245 (Version 1)
Quarter: 2014Q1

REPORT INFORMATION
  Report Type: Report from Study
  Country: US (occurrence: US)
  Receive Date: 20140303
  Receipt Date: 20140303
  Transmission Date: 20141002
  Serious: Yes (Hospitalization)
  Sender: FDA-Public Use
  Company Number: US-ABBVIE-13P-163-1032429-00

PATIENT
  Sex: Male

DRUGS (1)
  1. HUMIRA [Suspect]
     Indication: CROHN^S DISEASE
     Route: 058
     Dates: start: 20120222

REACTIONS (5)
  - Crohn^s disease [Unknown]
  - Fungal skin infection [Recovering/Resolving]
  - Mouth ulceration [Recovered/Resolved]
  - Arthritis [Unknown]
  - Local swelling [Unknown]
